FAERS Safety Report 9591562 (Version 2)
Quarter: 2013Q4

REPORT INFORMATION
  Report Type: Report from Study
  Country: US (occurrence: US)
  Receive Date: 20131003
  Receipt Date: 20131003
  Transmission Date: 20140711
  Serious: Yes (Other)
  Sender: FDA-Public Use
  Company Number: US-ABBVIE-13P-163-1088268-00

PATIENT
  Age: 53 Year
  Sex: Male
  Weight: 73.55 kg

DRUGS (20)
  1. HUMIRA [Suspect]
     Indication: CROHN^S DISEASE
     Dates: start: 20120907, end: 20130413
  2. HUMIRA [Suspect]
  3. DOXYCYCLINE [Suspect]
     Indication: PNEUMONIA
     Dates: start: 201304
  4. AVELOX [Suspect]
     Indication: PNEUMONIA
     Dates: start: 201304
  5. IMURAN [Concomitant]
     Indication: PRODUCT USED FOR UNKNOWN INDICATION
  6. B12 [Concomitant]
     Indication: PRODUCT USED FOR UNKNOWN INDICATION
     Route: 030
  7. ANDROGEL [Concomitant]
     Indication: HORMONE REPLACEMENT THERAPY
  8. GABAPENTIN [Concomitant]
     Indication: PRODUCT USED FOR UNKNOWN INDICATION
  9. POTASSIUM [Concomitant]
     Indication: PRODUCT USED FOR UNKNOWN INDICATION
  10. BUDESONIDE [Concomitant]
     Indication: CROHN^S DISEASE
  11. VITAMIN D [Concomitant]
     Indication: PRODUCT USED FOR UNKNOWN INDICATION
  12. DICYCLOMINE [Concomitant]
     Indication: PRODUCT USED FOR UNKNOWN INDICATION
  13. LIALDA [Concomitant]
     Indication: PRODUCT USED FOR UNKNOWN INDICATION
  14. BENADRYL [Concomitant]
     Indication: PROPHYLAXIS
     Dosage: 25 MG DAILY PRIOR TO LIALDA
  15. BENADRYL [Concomitant]
     Indication: ADVERSE DRUG REACTION
  16. OMEPRAZOLE [Concomitant]
     Indication: PRODUCT USED FOR UNKNOWN INDICATION
  17. LOMOTIL [Concomitant]
     Indication: PRODUCT USED FOR UNKNOWN INDICATION
  18. TRAMADOL [Concomitant]
     Indication: PRODUCT USED FOR UNKNOWN INDICATION
  19. AMLODIPINE [Concomitant]
     Indication: PRODUCT USED FOR UNKNOWN INDICATION
  20. LISINOPRIL [Concomitant]
     Indication: PRODUCT USED FOR UNKNOWN INDICATION

REACTIONS (18)
  - Encephalopathy [Not Recovered/Not Resolved]
  - Coccidioidomycosis [Not Recovered/Not Resolved]
  - Hyperhidrosis [Not Recovered/Not Resolved]
  - Chest discomfort [Not Recovered/Not Resolved]
  - Pneumonia [Not Recovered/Not Resolved]
  - Pneumonia [Not Recovered/Not Resolved]
  - Anal fistula [Not Recovered/Not Resolved]
  - Night sweats [Unknown]
  - Arthralgia [Unknown]
  - Myalgia [Unknown]
  - Blood pressure increased [Unknown]
  - Pulmonary mass [Unknown]
  - Serology positive [Unknown]
  - Immunosuppression [Unknown]
  - Abdominal discomfort [Unknown]
  - Diarrhoea [Unknown]
  - Urine output decreased [Unknown]
  - Dry mouth [Unknown]
